FAERS Safety Report 4721657-1 (Version None)
Quarter: 2005Q3

REPORT INFORMATION
  Report Type: 
  Country: None (occurrence: None)
  Receive Date: 20050721
  Receipt Date: 20050207
  Transmission Date: 20060218
  Serious: No
  Sender: FDA-Public Use
  Company Number: US-BRISTOL-MYERS SQUIBB COMPANY-12852687

PATIENT
  Age: 70 Year
  Sex: Male
  Weight: 100 kg

DRUGS (9)
  1. COUMADIN [Suspect]
     Dosage: 7.5 MG DAILY 6 DAYS/WEEK, 5 MG DAILY ON MON.
     Dates: start: 20010101
  2. GRAPEFRUIT [Suspect]
     Dosage: 2-3 DAILY
     Dates: start: 20050101
  3. FUROSEMIDE [Concomitant]
  4. PROSCAR [Concomitant]
  5. PRINIVIL [Concomitant]
  6. LISINOPRIL [Concomitant]
  7. ASPIRIN [Concomitant]
  8. MULTIVITAMIN [Concomitant]
  9. POTASSIUM CHLORIDE [Concomitant]

REACTIONS (1)
  - INTERNATIONAL NORMALISED RATIO FLUCTUATION [None]
